FAERS Safety Report 22794472 (Version 3)
Quarter: 2023Q4

REPORT INFORMATION
  Report Type: Report from Study
  Country: ES (occurrence: ES)
  Receive Date: 20230807
  Receipt Date: 20231023
  Transmission Date: 20240109
  Serious: Yes (Hospitalization, Disabling)
  Sender: FDA-Public Use
  Company Number: ES-JNJFOC-20230444529

PATIENT
  Age: 59 Year
  Sex: Male
  Weight: 92 kg

DRUGS (24)
  1. AMIVANTAMAB [Suspect]
     Active Substance: AMIVANTAMAB
     Indication: Non-small cell lung cancer
     Dosage: 7ML VIAL
     Route: 042
     Dates: start: 20221219, end: 20230411
  2. SIMVASTATIN [Concomitant]
     Active Substance: SIMVASTATIN
     Indication: Dyslipidaemia
     Route: 048
     Dates: start: 20120910
  3. BISOPROLOL [Concomitant]
     Active Substance: BISOPROLOL\BISOPROLOL FUMARATE
     Indication: Thrombosis prophylaxis
     Route: 048
     Dates: start: 20200528
  4. ALBUTEROL [Concomitant]
     Active Substance: ALBUTEROL
     Indication: Prophylaxis against bronchospasm
     Route: 045
     Dates: start: 20200601
  5. BEMIPARIN SODIUM [Concomitant]
     Active Substance: BEMIPARIN SODIUM
     Indication: Thrombosis prophylaxis
     Dosage: 10000
     Route: 058
     Dates: start: 20200723
  6. FERROUS SULFATE ANHYDROUS [Concomitant]
     Active Substance: FERROUS SULFATE ANHYDROUS
     Indication: Anaemia
     Route: 048
     Dates: start: 20200729
  7. PANTOPRAZOLE [Concomitant]
     Active Substance: PANTOPRAZOLE
     Indication: Prophylaxis
     Route: 048
     Dates: start: 20200731
  8. MAGNESIUM LACTATE [Concomitant]
     Active Substance: MAGNESIUM LACTATE
     Indication: Hypomagnesaemia
     Route: 048
     Dates: start: 20220914
  9. CEFEPIME [Concomitant]
     Active Substance: CEFEPIME HYDROCHLORIDE
     Indication: Skin ulcer
     Dosage: FREQ: TID
     Route: 042
     Dates: start: 20230417, end: 20230428
  10. IPRATROPIUM BROMIDE [Concomitant]
     Active Substance: IPRATROPIUM BROMIDE\IPRATROPIUM BROMIDE ANHYDROUS
     Indication: Oxygen consumption
     Dosage: 1 DOSAGE NUMBER
     Route: 055
     Dates: start: 20230417, end: 20230425
  11. IPRATROPIUM BROMIDE [Concomitant]
     Active Substance: IPRATROPIUM BROMIDE\IPRATROPIUM BROMIDE ANHYDROUS
     Indication: Prophylaxis against bronchospasm
     Route: 055
     Dates: start: 20230425, end: 20230428
  12. IPRATROPIUM BROMIDE [Concomitant]
     Active Substance: IPRATROPIUM BROMIDE\IPRATROPIUM BROMIDE ANHYDROUS
     Route: 055
     Dates: start: 20230428, end: 20230512
  13. BETAMETHASONE [Concomitant]
     Active Substance: BETAMETHASONE
     Indication: Skin ulcer
     Dosage: 1 DOSAGE NUMBER
     Route: 061
     Dates: start: 20230419
  14. BETAMETHASONE [Concomitant]
     Active Substance: BETAMETHASONE
     Indication: Mucosal infection
  15. CUPRIC SULFATE ANHYDROUS [Concomitant]
     Active Substance: CUPRIC SULFATE ANHYDROUS
     Indication: Skin ulcer
     Dosage: 1 DOSAGE NUMBER
     Route: 062
     Dates: start: 20230419, end: 20230502
  16. DEXAMETHASONE [Concomitant]
     Active Substance: DEXAMETHASONE
     Indication: Skin ulcer
     Route: 042
     Dates: start: 20230419, end: 20230425
  17. DEXAMETHASONE [Concomitant]
     Active Substance: DEXAMETHASONE
     Route: 042
     Dates: start: 20230425, end: 20230426
  18. DEXAMETHASONE [Concomitant]
     Active Substance: DEXAMETHASONE
     Route: 048
     Dates: start: 20230428, end: 20230428
  19. DEXAMETHASONE [Concomitant]
     Active Substance: DEXAMETHASONE
     Route: 048
     Dates: start: 20230428, end: 20230512
  20. GENTAMICIN [Concomitant]
     Active Substance: GENTAMICIN
     Indication: Skin ulcer
     Dosage: 1 DOSAGE NUMBER
     Route: 061
     Dates: start: 20230419
  21. GENTAMICIN [Concomitant]
     Active Substance: GENTAMICIN
     Indication: Mucosal infection
  22. ERYTHROMYCIN [Concomitant]
     Active Substance: ERYTHROMYCIN
     Indication: Eye infection
     Route: 047
     Dates: start: 20230421, end: 20230502
  23. HYDROCORTISONE [Concomitant]
     Active Substance: HYDROCORTISONE
     Indication: Eye infection
     Route: 047
     Dates: start: 20230421, end: 20230512
  24. ZINC SULFATE [Concomitant]
     Active Substance: ZINC SULFATE
     Indication: Skin ulcer
     Route: 061
     Dates: start: 20230419, end: 20230512

REACTIONS (1)
  - Neurotoxicity [Recovered/Resolved with Sequelae]

NARRATIVE: CASE EVENT DATE: 20230417
